FAERS Safety Report 8093036-3 (Version None)
Quarter: 2012Q1

REPORT INFORMATION
  Report Type: 
  Country: None (occurrence: None)
  Receive Date: 20120128
  Receipt Date: 20110908
  Transmission Date: 20120608
  Serious: No
  Sender: FDA-Public Use
  Company Number: US-ABBOTT-10P-163-0693745-00

PATIENT
  Sex: Female
  Weight: 83.99 kg

DRUGS (4)
  1. MELOXICAM [Concomitant]
     Indication: PAIN
  2. HUMIRA [Suspect]
     Indication: PSORIATIC ARTHROPATHY
     Dates: start: 20101216, end: 20110908
  3. VITAMIN D [Concomitant]
     Indication: PRODUCT USED FOR UNKNOWN INDICATION
  4. LOESTRIN FE 1/20 [Concomitant]
     Indication: CONTRACEPTION
     Dosage: 24

REACTIONS (15)
  - OROPHARYNGEAL PAIN [None]
  - PSORIASIS [None]
  - PYREXIA [None]
  - DRUG INEFFECTIVE [None]
  - ASTHENIA [None]
  - FATIGUE [None]
  - ARTHRALGIA [None]
  - INJECTION SITE VESICLES [None]
  - INJECTION SITE PAIN [None]
  - DEVICE MALFUNCTION [None]
  - HYPOAESTHESIA [None]
  - INCORRECT DOSE ADMINISTERED [None]
  - TONSILLAR INFLAMMATION [None]
  - TONSILLOLITH [None]
  - INJECTION SITE HAEMATOMA [None]
